FAERS Safety Report 9925378 (Version 2)
Quarter: 2014Q2

REPORT INFORMATION
  Report Type: Report from Study
  Country: US (occurrence: US)
  Receive Date: 20140226
  Receipt Date: 20140505
  Transmission Date: 20141212
  Serious: Yes (Other)
  Sender: FDA-Public Use
  Company Number: US-JNJFOC-20140212684

PATIENT
  Age: 44 Year
  Sex: Female
  Weight: 93.44 kg

DRUGS (12)
  1. REMICADE [Suspect]
     Indication: PSORIATIC ARTHROPATHY
     Route: 042
     Dates: start: 2009
  2. REMICADE [Suspect]
     Indication: PSORIATIC ARTHROPATHY
     Route: 042
     Dates: start: 20140214
  3. REMICADE [Suspect]
     Indication: COLITIS
     Route: 042
     Dates: start: 20140214
  4. REMICADE [Suspect]
     Indication: COLITIS
     Route: 042
     Dates: start: 2009
  5. REMICADE [Suspect]
     Indication: RHEUMATOID ARTHRITIS
     Route: 042
     Dates: start: 2009
  6. REMICADE [Suspect]
     Indication: RHEUMATOID ARTHRITIS
     Route: 042
     Dates: start: 20140214
  7. SULFASALAZINE [Suspect]
     Indication: PSORIATIC ARTHROPATHY
     Route: 065
  8. SULFASALAZINE [Suspect]
     Indication: PSORIATIC ARTHROPATHY
     Route: 065
     Dates: end: 2013
  9. SULFASALAZINE [Suspect]
     Indication: COLITIS
     Route: 065
  10. SULFASALAZINE [Suspect]
     Indication: COLITIS
     Route: 065
     Dates: end: 2013
  11. ENTOCORT [Concomitant]
     Indication: COLITIS
     Route: 065
  12. PERCOCET [Concomitant]
     Indication: PAIN
     Dosage: 5/325 MG
     Route: 048
     Dates: start: 2012

REACTIONS (8)
  - Intestinal prolapse [Recovered/Resolved]
  - Adenomyosis [Recovered/Resolved]
  - Bladder prolapse [Recovered/Resolved]
  - Psoriasis [Not Recovered/Not Resolved]
  - Rash pruritic [Recovered/Resolved]
  - Arthritis [Recovering/Resolving]
  - Skin discolouration [Recovered/Resolved]
  - Swelling face [Recovered/Resolved]
